FAERS Safety Report 6407540-4 (Version None)
Quarter: 2009Q4

REPORT INFORMATION
  Report Type: 
  Country: None (occurrence: None)
  Receive Date: 20091015
  Receipt Date: 20090930
  Transmission Date: 20100525
  Serious: Yes (Death)
  Sender: FDA-Public Use
  Company Number: JP-2009-1859

PATIENT
  Age: 80 Year
  Sex: Female

DRUGS (3)
  1. NAVELBINE [Suspect]
     Indication: LUNG NEOPLASM MALIGNANT
     Dosage: 20 MG/M2 IV
     Route: 042
     Dates: start: 20090507, end: 20090605
  2. UFT [Concomitant]
  3. NORVASC [Concomitant]

REACTIONS (8)
  - CEREBRAL INFARCTION [None]
  - DYSLALIA [None]
  - HEMIPLEGIA [None]
  - HYPOPHAGIA [None]
  - LOSS OF CONSCIOUSNESS [None]
  - METASTASES TO CENTRAL NERVOUS SYSTEM [None]
  - METASTASES TO MENINGES [None]
  - TUMOUR EMBOLISM [None]
